FAERS Safety Report 5310194-1 (Version None)
Quarter: 2007Q2

REPORT INFORMATION
  Report Type: 
  Country: None (occurrence: None)
  Receive Date: 20070427
  Receipt Date: 20070423
  Transmission Date: 20071010
  Serious: Yes (Hospitalization)
  Sender: FDA-Public Use
  Company Number: 2007UW07801

PATIENT
  Age: 3 Year
  Sex: Male

DRUGS (2)
  1. TOPOTECAN [Suspect]
     Dates: start: 20070306, end: 20070317
  2. IRESSA [Suspect]

REACTIONS (4)
  - GASTROENTERITIS ROTAVIRUS [None]
  - HYPOTENSION [None]
  - INFECTION [None]
  - NEUTROPENIA [None]
